FAERS Safety Report 19143427 (Version 1)
Quarter: 2021Q2

REPORT INFORMATION
  Report Type: Spontaneous
  Country: US (occurrence: US)
  Receive Date: 20210416
  Receipt Date: 20210416
  Transmission Date: 20210717
  Serious: No
  Sender: FDA-Public Use
  Company Number: US-ASTRAZENECA-2021A229015

PATIENT
  Sex: Female
  Weight: 67.6 kg

DRUGS (1)
  1. BEVESPI AEROSPHERE [Suspect]
     Active Substance: FORMOTEROL FUMARATE\GLYCOPYRROLATE
     Indication: CHRONIC OBSTRUCTIVE PULMONARY DISEASE
     Dosage: DAILY
     Route: 055

REACTIONS (4)
  - Wrong technique in product usage process [Unknown]
  - Memory impairment [Unknown]
  - Device malfunction [Unknown]
  - Eye disorder [Unknown]
